FAERS Safety Report 5136922-6 (Version None)
Quarter: 2006Q4

REPORT INFORMATION
  Report Type: 
  Country: None (occurrence: None)
  Receive Date: 20061023
  Receipt Date: 20061012
  Transmission Date: 20070319
  Serious: Yes (Death)
  Sender: FDA-Public Use
  Company Number: 2006123457

PATIENT
  Age: 96 Year
  Sex: Male

DRUGS (5)
  1. ZOLOFT [Suspect]
     Indication: DEPRESSION
     Dosage: 50 MG (FREQUENCY:  DAILY), ORAL
     Route: 048
  2. ZOLOFT [Suspect]
     Indication: INSOMNIA
     Dosage: 50 MG (FREQUENCY:  DAILY), ORAL
     Route: 048
  3. ZOLOFT [Suspect]
     Indication: MOOD ALTERED
     Dosage: 50 MG (FREQUENCY:  DAILY), ORAL
     Route: 048
  4. ZOLOFT [Suspect]
     Indication: PSYCHOMOTOR HYPERACTIVITY
     Dosage: 50 MG (FREQUENCY:  DAILY), ORAL
     Route: 048
  5. MINIAS             (LORMETAZEPAM) [Concomitant]

REACTIONS (3)
  - CARDIAC FAILURE [None]
  - CEREBROVASCULAR ACCIDENT [None]
  - COMA [None]
